FAERS Safety Report 4556176-9 (Version None)
Quarter: 2005Q1

REPORT INFORMATION
  Report Type: 
  Country: None (occurrence: None)
  Receive Date: 20050103
  Receipt Date: 20041117
  Transmission Date: 20050727
  Serious: No
  Sender: FDA-Public Use
  Company Number: 2004UW21688

PATIENT
  Age: 51 Year
  Sex: Male
  Weight: 108.8633 kg

DRUGS (5)
  1. CRESTOR [Suspect]
     Indication: DYSLIPIDAEMIA
     Dosage: 10 MG QD PO
     Route: 048
     Dates: start: 20040723, end: 20041020
  2. CARVEDILOL [Concomitant]
  3. LISINOPRIL [Concomitant]
  4. SOTALOL HCL [Concomitant]
  5. SIMVASTATIN [Concomitant]

REACTIONS (1)
  - MYALGIA [None]
